FAERS Safety Report 13964446 (Version 2)
Quarter: 2017Q3

REPORT INFORMATION
  Report Type: Spontaneous
  Country: US (occurrence: US)
  Receive Date: 20170913
  Receipt Date: 20170918
  Transmission Date: 20171128
  Serious: Yes (Hospitalization, Other)
  Sender: FDA-Public Use
  Company Number: US-PFIZER INC-2017390855

PATIENT
  Age: 61 Year
  Sex: Male
  Weight: 145.13 kg

DRUGS (2)
  1. IBRANCE [Suspect]
     Active Substance: PALBOCICLIB
     Indication: BREAST CANCER MALE
     Dosage: 125 MG, CYCLIC (ONCE A DAY FOR 21DAYS THEN 7 DAYS OFF)
     Route: 048
     Dates: start: 201607, end: 20170825
  2. IBRANCE [Suspect]
     Active Substance: PALBOCICLIB
     Dosage: 125 MG, CYCLIC (ONCE A DAY FOR 21DAYS THEN 7 DAYS OFF)
     Route: 048
     Dates: start: 20170827

REACTIONS (2)
  - Pleural effusion [Not Recovered/Not Resolved]
  - Product use issue [Unknown]

NARRATIVE: CASE EVENT DATE: 201607
